FAERS Safety Report 5203233-X (Version None)
Quarter: 2006Q4

REPORT INFORMATION
  Report Type: 
  Country: None (occurrence: None)
  Receive Date: 20061016
  Receipt Date: 20060405
  Transmission Date: 20070319
  Serious: Yes (Other)
  Sender: FDA-Public Use
  Company Number: 2006031668

PATIENT
  Age: 36 Year
  Sex: Male

DRUGS (2)
  1. NEURONTIN [Suspect]
     Indication: ILL-DEFINED DISORDER
     Dosage: 900 MG(300 MG, 3 IN 1 D), ORAL
     Route: 048
  2. EFFEXOR [Concomitant]

REACTIONS (1)
  - SUICIDAL IDEATION [None]
